FAERS Safety Report 5083632-X (Version None)
Quarter: 2006Q3

REPORT INFORMATION
  Report Type: 
  Country: None (occurrence: None)
  Receive Date: 20060816
  Receipt Date: 20060807
  Transmission Date: 20061208
  Serious: Yes (Hospitalization)
  Sender: FDA-Public Use
  Company Number: 235047K06USA

PATIENT
  Age: 48 Year
  Sex: Female

DRUGS (2)
  1. REBIF [Suspect]
     Indication: MULTIPLE SCLEROSIS
     Dosage: 44 MCG, 3 IN 1 WEEKS, SUBCUTANEOUS
     Route: 058
     Dates: start: 20030919
  2. ^LOTS OF NARCOTICS^ (ALL OTHER THERAPEUTIC PRODUCTS) [Suspect]

REACTIONS (3)
  - FALL [None]
  - FRACTURED SACRUM [None]
  - PAIN [None]
